FAERS Safety Report 10431211 (Version 3)
Quarter: 2014Q4

REPORT INFORMATION
  Report Type: Report from Study
  Country: JP (occurrence: JP)
  Receive Date: 20140904
  Receipt Date: 20141008
  Transmission Date: 20150528
  Serious: Yes (Death, Hospitalization, Other)
  Sender: FDA-Public Use
  Company Number: JP-PFIZER INC-2011130428

PATIENT
  Age: 71 Year
  Sex: Female
  Weight: 37 kg

DRUGS (20)
  1. TEMSIROLIMUS [Suspect]
     Active Substance: TEMSIROLIMUS
     Indication: METASTATIC RENAL CELL CARCINOMA
     Dosage: 20 MG, WEEKLY
     Route: 041
     Dates: start: 20110308, end: 20110329
  2. POLARAMINE [Concomitant]
     Active Substance: DEXCHLORPHENIRAMINE MALEATE
     Indication: PROPHYLAXIS
     Dosage: 2 MG, WEEKLY
     Route: 048
     Dates: start: 20110308, end: 20110419
  3. ASPARA [Concomitant]
     Active Substance: CALCIUM ASPARTATE
     Indication: PROPHYLAXIS
     Dosage: 300 MG, 2X/DAY
     Route: 048
     Dates: start: 20110310
  4. TAKEPRON [Concomitant]
     Active Substance: LANSOPRAZOLE
     Indication: PROPHYLAXIS
     Dosage: 15 MG, 1X/DAY
     Route: 048
     Dates: end: 20110629
  5. LOXOPROFEN [Concomitant]
     Active Substance: LOXOPROFEN
     Indication: RENAL CELL CARCINOMA
     Dosage: 60 MG, 3X/DAY
     Route: 048
     Dates: start: 20110510, end: 20110629
  6. PROMAC D [Concomitant]
     Active Substance: NITROFURANTOIN
     Dosage: 75 MG, 2X/DAY
     Route: 048
     Dates: start: 20110517, end: 20110622
  7. DEXALTIN [Concomitant]
     Active Substance: DEXAMETHASONE
     Dosage: UNK
     Route: 062
     Dates: start: 20110517, end: 20110629
  8. TEMSIROLIMUS [Suspect]
     Active Substance: TEMSIROLIMUS
     Dosage: 15 MG, WEEKLY
     Route: 041
     Dates: start: 20110510, end: 20110815
  9. UBIRON [Concomitant]
     Indication: RENAL CELL CARCINOMA
     Dosage: 100 MG, 2X/DAY
     Route: 048
     Dates: end: 20110629
  10. ZOMETA [Concomitant]
     Active Substance: ZOLEDRONIC ACID
     Indication: RENAL CELL CARCINOMA
     Dosage: 4 MG, 1X/DAY
     Route: 042
     Dates: start: 20110310
  11. HOKUNALIN [Concomitant]
     Active Substance: TULOBUTEROL
     Dosage: 1 MG, 1X/DAY
     Route: 062
     Dates: end: 20110310
  12. CALONAL [Concomitant]
     Active Substance: ACETAMINOPHEN
     Indication: RENAL CELL CARCINOMA
     Dosage: 200 MG, 2X/DAY
     Route: 048
     Dates: end: 20110517
  13. MAGMITT [Concomitant]
     Active Substance: MAGNESIUM OXIDE
     Dosage: 330 MG, 2X/DAY
     Route: 048
     Dates: end: 20110406
  14. THYRADIN S [Concomitant]
     Active Substance: LEVOTHYROXINE SODIUM
     Indication: PROPHYLAXIS
     Dosage: 50 UG, 1X/DAY
     Route: 048
  15. TEMSIROLIMUS [Suspect]
     Active Substance: TEMSIROLIMUS
     Dosage: 15 MG, WEEKLY
     Route: 041
     Dates: start: 20110405, end: 20110426
  16. MUCODYNE [Concomitant]
     Active Substance: CARBOCYSTEINE
     Dosage: 500 MG, 2X/DAY
     Route: 048
     Dates: end: 20110310
  17. MELOXICAM. [Concomitant]
     Active Substance: MELOXICAM
     Indication: RENAL CELL CARCINOMA
     Dosage: 10 MG, 1X/DAY
     Route: 048
  18. VESICARE [Concomitant]
     Active Substance: SOLIFENACIN SUCCINATE
     Dosage: 5 MG, 1X/DAY
     Route: 048
     Dates: start: 20110516
  19. LASIX [Concomitant]
     Active Substance: FUROSEMIDE
     Dosage: 20 MG, 2X/DAY
     Route: 048
     Dates: end: 20110629
  20. NEUROVITAN [Concomitant]
     Active Substance: VITAMINS
     Dosage: 1 TABLET, 3X/DAY
     Route: 048
     Dates: start: 20110526, end: 20110622

REACTIONS (4)
  - Disease progression [Fatal]
  - Anaemia [Not Recovered/Not Resolved]
  - Metastatic renal cell carcinoma [Fatal]
  - Stomatitis [Not Recovered/Not Resolved]

NARRATIVE: CASE EVENT DATE: 20110315
